FAERS Safety Report 9969919 (Version 1)
Quarter: 2014Q1

REPORT INFORMATION
  Report Type: Spontaneous
  Country: US (occurrence: US)
  Receive Date: 20140306
  Receipt Date: 20140306
  Transmission Date: 20141002
  Serious: Yes (Life-Threatening)
  Sender: FDA-Public Use
  Company Number: US-MYLANLABS-2014S1004223

PATIENT
  Age: 64 Year
  Sex: Male

DRUGS (4)
  1. MYCOPHENOLATE [Suspect]
     Indication: IMMUNOSUPPRESSION
  2. TACROLIMUS [Suspect]
     Indication: IMMUNOSUPPRESSION
  3. PREDNISOLONE [Suspect]
     Indication: IMMUNOSUPPRESSION
  4. SIROLIMUS [Suspect]
     Indication: IMMUNOSUPPRESSION

REACTIONS (5)
  - Scedosporium infection [Unknown]
  - Enterocolitis fungal [Recovering/Resolving]
  - Brain abscess [Unknown]
  - Thrombocytopenia [Unknown]
  - Renal failure acute [Unknown]
